FAERS Safety Report 14073802 (Version 2)
Quarter: 2017Q4

REPORT INFORMATION
  Report Type: Spontaneous
  Country: SE (occurrence: SE)
  Receive Date: 20171011
  Receipt Date: 20171109
  Transmission Date: 20180321
  Serious: Yes (Other)
  Sender: FDA-Public Use
  Company Number: SE-PFIZER INC-2017433086

PATIENT
  Age: 61 Year
  Sex: Male

DRUGS (19)
  1. DELTISON /00044701/ [Suspect]
     Active Substance: PREDNISONE
     Indication: LYMPHOMA
     Dosage: 2 DF IN THE MORNING FOR 5 DAYS DURING CHEMOTHERAPY
     Route: 048
     Dates: start: 20170731
  2. CYCLOPHOSPHAMID [Concomitant]
     Active Substance: CYCLOPHOSPHAMIDE
     Dosage: UNK
  3. LEVAXIN [Concomitant]
     Active Substance: LEVOTHYROXINE SODIUM
     Dosage: UNK
  4. DAIVOBET [Concomitant]
     Active Substance: BETAMETHASONE DIPROPIONATE\CALCIPOTRIENE
     Dosage: UNK (OINTMENT)
  5. DOXORUBICIN [Concomitant]
     Active Substance: DOXORUBICIN
     Dosage: UNK
  6. NIVESTIM [Concomitant]
     Active Substance: FILGRASTIM
  7. AMLODIPINE [Concomitant]
     Active Substance: AMLODIPINE BESYLATE
     Dosage: UNK
  8. ALBUMIN BAXALTA [Concomitant]
     Dosage: UNK
  9. RITUXIMAB. [Concomitant]
     Active Substance: RITUXIMAB
     Dosage: UNK
  10. OMEPRAZOL ACTAVIS [Concomitant]
     Active Substance: OMEPRAZOLE
     Dosage: UNK
  11. PRIMPERAN [Concomitant]
     Active Substance: METOCLOPRAMIDE HYDROCHLORIDE
     Dosage: UNK
  12. ONDANSETRON [Concomitant]
     Active Substance: ONDANSETRON
     Dosage: UNK
  13. ALVEDON [Concomitant]
     Active Substance: ACETAMINOPHEN
     Dosage: UNK
  14. PANODIL [Concomitant]
     Active Substance: ACETAMINOPHEN
     Dosage: UNK
  15. SOLU-CORTEF [Suspect]
     Active Substance: HYDROCORTISONE SODIUM SUCCINATE
     Indication: LYMPHOMA
     Dosage: UNK, AS NEEDED
     Route: 042
     Dates: start: 20170731
  16. VINCRISTINE [Concomitant]
     Active Substance: VINCRISTINE
     Dosage: UNK
  17. MOMETASON GLENMARK [Concomitant]
     Dosage: UNK
  18. DAIVOBET [Concomitant]
     Active Substance: BETAMETHASONE DIPROPIONATE\CALCIPOTRIENE
     Dosage: UNK (GEL)
  19. CETIRIZIN SANDOZ [Concomitant]
     Dosage: UNK

REACTIONS (1)
  - Rosacea [Not Recovered/Not Resolved]

NARRATIVE: CASE EVENT DATE: 20170805
